FAERS Safety Report 11894260 (Version 2)
Quarter: 2016Q1

REPORT INFORMATION
  Report Type: Spontaneous
  Country: IT (occurrence: IT)
  Receive Date: 20160107
  Receipt Date: 20160115
  Transmission Date: 20160526
  Serious: Yes (Other)
  Sender: FDA-Public Use
  Company Number: IT-TEVA-622327ACC

PATIENT
  Age: 69 Year
  Sex: Female

DRUGS (3)
  1. CYCLOPHOSPHAMIDE. [Suspect]
     Active Substance: CYCLOPHOSPHAMIDE
     Indication: NON-HODGKIN^S LYMPHOMA
     Dosage: 1 MG TOTAL
     Route: 042
     Dates: start: 20151111, end: 20151111
  2. ADRIBLASTINA - PFIZER ITALIA S.R.L. [Suspect]
     Active Substance: DOXORUBICIN HYDROCHLORIDE
     Indication: NON-HODGKIN^S LYMPHOMA
     Dosage: 75 MG TOTAL
     Route: 042
     Dates: start: 20151111, end: 20151111
  3. VINCRISTINA TEVA - TEVA PHARMA B.V. [Suspect]
     Active Substance: VINCRISTINE
     Indication: NON-HODGKIN^S LYMPHOMA
     Dosage: 2 MG TOTAL
     Route: 042
     Dates: start: 20151111, end: 20151111

REACTIONS (4)
  - Skin necrosis [Recovering/Resolving]
  - Flushing [Recovering/Resolving]
  - Chemotherapy extravasation management [Recovering/Resolving]
  - Inflammation [Recovering/Resolving]

NARRATIVE: CASE EVENT DATE: 20151118
